FAERS Safety Report 5059866-7 (Version None)
Quarter: 2006Q3

REPORT INFORMATION
  Report Type: 
  Country: None (occurrence: None)
  Receive Date: 20060724
  Receipt Date: 20060531
  Transmission Date: 20061208
  Serious: Yes (Hospitalization)
  Sender: FDA-Public Use
  Company Number: 2006AP02839

PATIENT
  Age: 22422 Day
  Sex: Female
  Weight: 45 kg

DRUGS (5)
  1. ARIMIDEX [Suspect]
     Indication: BREAST CANCER
     Route: 048
     Dates: start: 20050811, end: 20060524
  2. ARIMIDEX [Suspect]
     Indication: LUNG NEOPLASM MALIGNANT
     Route: 048
     Dates: start: 20050811, end: 20060524
  3. UFT [Suspect]
     Indication: BREAST CANCER
     Route: 048
     Dates: start: 20021121, end: 20060601
  4. PENTASA [Concomitant]
     Indication: COLITIS ULCERATIVE
     Route: 048
     Dates: start: 20021004
  5. RADIOTHERAPY [Concomitant]

REACTIONS (3)
  - ANOREXIA [None]
  - DIZZINESS [None]
  - EOSINOPHILIC PNEUMONIA [None]
